FAERS Safety Report 5515939-3 (Version None)
Quarter: 2007Q4

REPORT INFORMATION
  Report Type: 
  Country: None (occurrence: None)
  Receive Date: 20071109
  Receipt Date: 20071107
  Transmission Date: 20080405
  Serious: Yes (Other)
  Sender: FDA-Public Use
  Company Number: 2007SP018319

PATIENT
  Age: 36 Year
  Sex: Female
  Weight: 65 kg

DRUGS (2)
  1. PEG-INTRON [Suspect]
     Indication: HEPATITIS C
     Dates: start: 20051227, end: 20070710
  2. REBETOL [Suspect]
     Indication: HEPATITIS C
     Dates: start: 20051227, end: 20070710

REACTIONS (4)
  - BENIGN HYDATIDIFORM MOLE [None]
  - PREGNANCY OF PARTNER [None]
  - TRANSMISSION OF DRUG VIA SEMEN [None]
  - UTERINE DILATION AND CURETTAGE [None]
